FAERS Safety Report 14468260 (Version 1)
Quarter: 2018Q1

REPORT INFORMATION
  Report Type: Spontaneous
  Country: IT (occurrence: IT)
  Receive Date: 20180131
  Receipt Date: 20180131
  Transmission Date: 20180509
  Serious: Yes (Other)
  Sender: FDA-Public Use
  Company Number: IT-TEVA-2018-IT-850020

PATIENT
  Sex: Female

DRUGS (1)
  1. COPAXONE [Suspect]
     Active Substance: GLATIRAMER ACETATE
     Dosage: UNKNOWN STRENGTH
     Route: 065

REACTIONS (7)
  - Anaphylactic shock [Unknown]
  - Dyspnoea [Unknown]
  - Pruritus generalised [Unknown]
  - Swelling face [Unknown]
  - Urticaria [Unknown]
  - Rash [Unknown]
  - Lip swelling [Unknown]
